FAERS Safety Report 21171731 (Version 1)
Quarter: 2022Q3

REPORT INFORMATION
  Report Type: Report from Study
  Country: US (occurrence: US)
  Receive Date: 20220804
  Receipt Date: 20220804
  Transmission Date: 20221026
  Serious: Yes (Hospitalization)
  Sender: FDA-Public Use
  Company Number: US-HORIZON THERAPEUTICS-HZN-2021-009511

PATIENT

DRUGS (2)
  1. KRYSTEXXA [Suspect]
     Active Substance: PEGLOTICASE
     Indication: Gouty tophus
     Dosage: 8 MG
     Route: 042
     Dates: start: 20210520
  2. KRYSTEXXA [Suspect]
     Active Substance: PEGLOTICASE
     Dosage: UNKNOWN INFUSION
     Route: 042
     Dates: start: 20220713

REACTIONS (5)
  - Cardiac disorder [Unknown]
  - Cardiac failure congestive [Recovering/Resolving]
  - Asthenia [Recovering/Resolving]
  - COVID-19 [Recovering/Resolving]
  - Fall [Recovering/Resolving]
